FAERS Safety Report 5903648-8 (Version None)
Quarter: 2008Q3

REPORT INFORMATION
  Report Type: 
  Country: None (occurrence: None)
  Receive Date: 20080930
  Receipt Date: 20080917
  Transmission Date: 20090109
  Serious: Yes (Other)
  Sender: FDA-Public Use
  Company Number: DE-ELI_LILLY_AND_COMPANY-DE200809003951

PATIENT
  Age: 55 Year
  Sex: Male

DRUGS (10)
  1. BYETTA [Suspect]
     Indication: TYPE 2 DIABETES MELLITUS
     Dosage: UNK, UNKNOWN
     Route: 058
     Dates: start: 20071101, end: 20080401
  2. BYETTA [Suspect]
     Dosage: 10 UG, UNKNOWN
     Route: 058
     Dates: start: 20080401, end: 20080718
  3. BISOPROLOL FUMARATE [Concomitant]
     Dosage: 1/2 TABLET DAILY (1/D)
     Route: 048
  4. MOXONIDIN [Concomitant]
     Dosage: UNK, DAILY (1/D)
     Route: 048
  5. AMLODIPINE [Concomitant]
     Dosage: UNK, DAILY (1/D)
     Route: 048
  6. DOXAZOSIN MESYLATE [Concomitant]
     Dosage: UNK, DAILY (1/D)
     Route: 048
  7. VOTUM [Concomitant]
     Dosage: UNK, DAILY (1/D)
     Route: 048
  8. SIOFOR [Concomitant]
     Dosage: UNK, DAILY (1/D)
     Route: 048
  9. TORSEMIDE [Concomitant]
     Dosage: UNK, DAILY (1/D)
     Route: 048
  10. LEVOTHYROXINE SODIUM [Concomitant]
     Dosage: UNK, DAILY (1/D)
     Route: 048

REACTIONS (1)
  - PANCREATITIS ACUTE [None]
